FAERS Safety Report 16608214 (Version 1)
Quarter: 2019Q3

REPORT INFORMATION
  Report Type: Spontaneous
  Country: FR (occurrence: FR)
  Receive Date: 20190722
  Receipt Date: 20190722
  Transmission Date: 20191004
  Serious: Yes (Hospitalization)
  Sender: FDA-Public Use
  Company Number: FR-PFIZER INC-2019304080

PATIENT
  Age: 21 Year
  Sex: Female
  Weight: 68 kg

DRUGS (6)
  1. VINCRISTINE SULFATE. [Suspect]
     Active Substance: VINCRISTINE SULFATE
     Indication: CHEMOTHERAPY
     Dosage: 2 MG, 1X/DAY
     Route: 042
     Dates: start: 20180430, end: 20180430
  2. ENDOXAN [CYCLOPHOSPHAMIDE MONOHYDRATE] [Suspect]
     Active Substance: CYCLOPHOSPHAMIDE
     Indication: CHEMOTHERAPY
     Dosage: 2250 MG, 1X/DAY
     Route: 042
     Dates: start: 20180423, end: 20180423
  3. DOXORUBICINE ACCORD [Suspect]
     Active Substance: DOXORUBICIN
     Indication: CHEMOTHERAPY
     Dosage: 64 MG, 1X/DAY
     Route: 042
     Dates: start: 20180423, end: 20180423
  4. ETOPOSIDE TEVA [Suspect]
     Active Substance: ETOPOSIDE
     Indication: CHEMOTHERAPY
     Dosage: 360 MG, 1X/DAY
     Route: 042
     Dates: start: 20180423, end: 20180425
  5. BLEOMYCINE BELLON [Suspect]
     Active Substance: BLEOMYCIN SULFATE
     Indication: CHEMOTHERAPY
     Dosage: 18 MG, 1X/DAY
     Route: 042
     Dates: start: 20180430, end: 20180430
  6. NATULAN [Suspect]
     Active Substance: PROCARBAZINE HYDROCHLORIDE
     Indication: CHEMOTHERAPY
     Dosage: 180 MG, 1X/DAY
     Route: 048
     Dates: start: 20180423, end: 20180429

REACTIONS (1)
  - Febrile bone marrow aplasia [Recovered/Resolved]

NARRATIVE: CASE EVENT DATE: 20180504
